FAERS Safety Report 7900450 (Version 4)
Quarter: 2014Q1

REPORT INFORMATION
  Report Type: Spontaneous
  Country: US (occurrence: None)
  Receive Date: 20110301
  Receipt Date: 20130301
  Transmission Date: 20141002
  Serious: Yes (Other)
  Sender: FDA-Public Use
  Company Number: US-JNJFOC-20100504235

PATIENT
  Age: 52 Year
  Sex: Male
  Weight: 61.24 kg

DRUGS (1)
  1. MOTRIN IB [Suspect]
     Indication: PAIN
     Dosage: ORAL
     Route: 048
     Dates: end: 200901

REACTIONS (2)
  - Gastrointestinal haemorrhage [None]
  - Insomnia [None]
